FAERS Safety Report 5711719-4 (Version None)
Quarter: 2008Q2

REPORT INFORMATION
  Report Type: 
  Country: None (occurrence: None)
  Receive Date: 20080421
  Receipt Date: 20080410
  Transmission Date: 20081010
  Serious: Yes (Disabling, Other)
  Sender: FDA-Public Use
  Company Number: BR-PFIZER INC-2008007880

PATIENT
  Age: 20 Year
  Sex: Male
  Weight: 70 kg

DRUGS (6)
  1. SILDENAFIL CITRATE [Suspect]
     Indication: PULMONARY HYPERTENSION
     Route: 048
  2. WARFARIN SODIUM [Concomitant]
  3. SPIRONOLACTONE [Concomitant]
  4. FUROSEMIDE [Concomitant]
     Dates: start: 20060101, end: 20060101
  5. OMEPRAZOLE [Concomitant]
  6. PREDNISONE [Concomitant]

REACTIONS (7)
  - BONE MARROW OEDEMA [None]
  - GAIT DISTURBANCE [None]
  - MYELOPATHY [None]
  - OSTEOPOROSIS [None]
  - PULMONARY HYPERTENSION [None]
  - QUADRIPLEGIA [None]
  - SYNCOPE [None]
